FAERS Safety Report 21230294 (Version 1)
Quarter: 2022Q3

REPORT INFORMATION
  Report Type: Spontaneous
  Country: US (occurrence: US)
  Receive Date: 20220818
  Receipt Date: 20220818
  Transmission Date: 20221027
  Serious: No
  Sender: FDA-Public Use
  Company Number: US-SANOFI-01211844

PATIENT
  Age: 72 Year
  Sex: Male

DRUGS (9)
  1. AMIODARONE HYDROCHLORIDE [Suspect]
     Active Substance: AMIODARONE HYDROCHLORIDE
     Dosage: UNK
  2. MULTAQ [Suspect]
     Active Substance: DRONEDARONE
     Indication: Atrial fibrillation
     Dosage: 400 MG, BID
     Dates: start: 20220715, end: 20220728
  3. AMIODARONE [Concomitant]
     Active Substance: AMIODARONE
  4. LANSOPRAZOLE [Suspect]
     Active Substance: LANSOPRAZOLE
     Dosage: UNK
  5. ELIQUIS [Suspect]
     Active Substance: APIXABAN
     Dosage: UNK
  6. PEPCID AC [Suspect]
     Active Substance: FAMOTIDINE
     Dosage: UNK
  7. HERBALS\SAW PALMETTO [Suspect]
     Active Substance: HERBALS\SAW PALMETTO
  8. CALCIUM CITRATE\CHOLECALCIFEROL [Suspect]
     Active Substance: CALCIUM CITRATE\CHOLECALCIFEROL
     Dosage: UNK
  9. VITAMINS NOS [Suspect]
     Active Substance: VITAMINS

REACTIONS (2)
  - Visual impairment [Unknown]
  - Vision blurred [Recovered/Resolved with Sequelae]

NARRATIVE: CASE EVENT DATE: 20220728
